FAERS Safety Report 10777205 (Version 1)
Quarter: 2015Q1

REPORT INFORMATION
  Report Type: Report from Study
  Country: CA (occurrence: CA)
  Receive Date: 20150209
  Receipt Date: 20150209
  Transmission Date: 20150721
  Serious: Yes (Death)
  Sender: FDA-Public Use
  Company Number: PHHY2014CA140592

PATIENT
  Age: 63 Year
  Sex: Female

DRUGS (3)
  1. SANDOSTATIN LAR DEPOT [Suspect]
     Active Substance: OCTREOTIDE ACETATE
     Indication: METASTATIC MALIGNANT MELANOMA
     Dosage: 30 MG, QMO (ONCE A MONTH)
     Route: 030
     Dates: start: 20141022
  2. FENTANYL. [Concomitant]
     Active Substance: FENTANYL
     Indication: PRODUCT USED FOR UNKNOWN INDICATION
     Dosage: 25 UG, UNK
     Route: 065
  3. SANDOSTATIN [Suspect]
     Active Substance: OCTREOTIDE ACETATE
     Indication: METASTATIC MALIGNANT MELANOMA
     Dosage: 100 UG, Q8H
     Route: 058
     Dates: start: 20141008, end: 20141028

REACTIONS (5)
  - Blood pressure increased [Unknown]
  - Palpitations [Unknown]
  - Thirst [Unknown]
  - Death [Fatal]
  - Dizziness [Unknown]

NARRATIVE: CASE EVENT DATE: 20141008
